FAERS Safety Report 5890042-1 (Version None)
Quarter: 2008Q3

REPORT INFORMATION
  Report Type: 
  Country: None (occurrence: None)
  Receive Date: 20080919
  Receipt Date: 20080909
  Transmission Date: 20090109
  Serious: Yes (Hospitalization, Other)
  Sender: FDA-Public Use
  Company Number: AU-PFIZER INC-2008070433

PATIENT
  Sex: Female

DRUGS (7)
  1. ZELDOX (CAPSULES) [Suspect]
     Indication: BIPOLAR DISORDER
     Route: 048
     Dates: start: 20080812
  2. ZYPREXA [Suspect]
     Indication: BIPOLAR DISORDER
  3. LEVOTHYROXINE SODIUM [Concomitant]
  4. LOVAN [Concomitant]
     Route: 048
  5. MELATONIN [Concomitant]
  6. GINKO BILOBA [Concomitant]
  7. ALL OTHER THERAPEUTIC PRODUCTS [Concomitant]

REACTIONS (6)
  - CONVULSION [None]
  - HALLUCINATION, AUDITORY [None]
  - INSOMNIA [None]
  - TINNITUS [None]
  - TRANSIENT ISCHAEMIC ATTACK [None]
  - TREMOR [None]
